FAERS Safety Report 25691089 (Version 1)
Quarter: 2025Q3

REPORT INFORMATION
  Report Type: 
  Country: CN (occurrence: CN)
  Receive Date: 20250818
  Receipt Date: 20250818
  Transmission Date: 20251021
  Serious: Yes (Other)
  Sender: JIANGSU HANSOH PHARMACEUTICAL GROUP CO., LTD.
  Company Number: CN-Hansoh-20252190014448

PATIENT
  Age: 52 Year
  Sex: Female

DRUGS (1)
  1. GEMCITABINE HYDROCHLORIDE [Suspect]
     Active Substance: GEMCITABINE HYDROCHLORIDE
     Indication: Undifferentiated nasopharyngeal carcinoma
     Dosage: 1.4 G, ONCE ONLY
     Route: 041
     Dates: start: 20250705, end: 20250705

REACTIONS (4)
  - Pruritus [Recovering/Resolving]
  - Dizziness [Recovering/Resolving]
  - Rash [Recovering/Resolving]
  - Off label use [Unknown]

NARRATIVE: CASE EVENT DATE: 20250705
